FAERS Safety Report 7332545-9 (Version None)
Quarter: 2011Q1

REPORT INFORMATION
  Report Type: 
  Country: None (occurrence: None)
  Receive Date: 20110304
  Receipt Date: 20110221
  Transmission Date: 20110831
  Serious: Yes (Disabling)
  Sender: FDA-Public Use
  Company Number: PHHY2011PT14103

PATIENT
  Sex: Male

DRUGS (2)
  1. GOSERELIN ACETATE [Concomitant]
     Route: 058
  2. ZOMETA [Suspect]
     Indication: PROPHYLAXIS
     Dosage: 4 MG/ 5 ML
     Dates: start: 20070307, end: 20110201

REACTIONS (1)
  - OSTEONECROSIS OF JAW [None]
